FAERS Safety Report 20634157 (Version 1)
Quarter: 2022Q1

REPORT INFORMATION
  Report Type: Spontaneous
  Country: US (occurrence: US)
  Receive Date: 20220324
  Receipt Date: 20220324
  Transmission Date: 20220424
  Serious: Yes (Other)
  Sender: FDA-Public Use
  Company Number: US-drreddys-SPO/USA/22/0147794

PATIENT
  Age: 53 Year
  Sex: Female
  Weight: 68.03 kg

DRUGS (1)
  1. TIZANIDINE HYDROCHLORIDE [Suspect]
     Active Substance: TIZANIDINE HYDROCHLORIDE
     Indication: Myalgia
     Route: 048
     Dates: end: 20220309

REACTIONS (3)
  - Hallucination [Unknown]
  - Photophobia [Unknown]
  - Product use in unapproved indication [Unknown]
